FAERS Safety Report 5372660-2 (Version None)
Quarter: 2007Q2

REPORT INFORMATION
  Report Type: 
  Country: None (occurrence: None)
  Receive Date: 20070626
  Receipt Date: 20070615
  Transmission Date: 20071010
  Serious: Yes (Other)
  Sender: FDA-Public Use
  Company Number: 2007JP002234

PATIENT
  Age: 75 Year
  Sex: Male

DRUGS (4)
  1. SOLIFENACIN(SOLIFENACIN) TABLET, UNKNOWN [Suspect]
     Dosage: 5 MG, UID/QD, ORAL
     Route: 048
     Dates: start: 20070306, end: 20070316
  2. TAMSULOSIN HYDROCHLORIDE (TAMSULOSIN HYDROCHLORIDE) PER ORAL NOS [Concomitant]
  3. NERSET (CHIMAPHILA UMBELLATA EXTRACT, EQUISETUM ARVENSE EXTRACT, PULAT [Concomitant]
  4. MEDEPOLIN (ALPRAZOLAM) PER ORAL NOS [Concomitant]

REACTIONS (2)
  - EYELID OEDEMA [None]
  - FACIAL PALSY [None]
